FAERS Safety Report 10218466 (Version 2)
Quarter: 2014Q2

REPORT INFORMATION
  Report Type: Report from Study
  Country: GR (occurrence: GR)
  Receive Date: 20140605
  Receipt Date: 20140605
  Transmission Date: 20141212
  Serious: Yes (Other)
  Sender: FDA-Public Use
  Company Number: PHHY2014GR043290

PATIENT
  Age: 72 Year
  Sex: Female
  Weight: 60 kg

DRUGS (5)
  1. AFINITOR [Suspect]
     Dosage: 10 MG, DAILY
     Route: 048
     Dates: start: 20140328
  2. T4 [Concomitant]
     Dosage: 50 MG, DAILY
  3. T4 [Concomitant]
     Dosage: 12 MG, DAILY
  4. RYTHMONORM [Concomitant]
     Dosage: 1 DF, TID
  5. PRADAXA [Concomitant]
     Dosage: 1 DF, BID

REACTIONS (10)
  - Abdominal mass [Unknown]
  - Metastases to lung [Unknown]
  - Incontinence [Not Recovered/Not Resolved]
  - Stomatitis [Not Recovered/Not Resolved]
  - Epistaxis [Not Recovered/Not Resolved]
  - Cough [Not Recovered/Not Resolved]
  - Nausea [Unknown]
  - Blood glucose increased [Unknown]
  - Ulcer [Unknown]
  - Drug ineffective [Unknown]
